FAERS Safety Report 9059977 (Version 1)
Quarter: 2013Q1

REPORT INFORMATION
  Report Type: Spontaneous
  Country: US (occurrence: None)
  Receive Date: 20130118
  Receipt Date: 20130118
  Transmission Date: 20140127
  Serious: Yes (Death)
  Sender: FDA-Public Use
  Company Number: TIR-01709

PATIENT
  Age: 60 Year
  Sex: Female

DRUGS (19)
  1. LEVOTHYROXINE [Suspect]
  2. CARBON MONOXIDE [Suspect]
  3. LORAZEPAM [Concomitant]
  4. IPRATROPIUM [Concomitant]
  5. AMIODARONE [Concomitant]
  6. AMITRIPTYLINE [Concomitant]
  7. ACETYLSALICYLIC ACID [Concomitant]
  8. BUSPIRONE [Concomitant]
  9. CARVEDILOL [Concomitant]
  10. FUROSEMIDE [Concomitant]
  11. LISINOPRIL [Concomitant]
  12. OMEPRAZOLE [Concomitant]
  13. POTASSIUM [Concomitant]
  14. QUETIAPINE [Concomitant]
  15. SPIRONOLACTONE [Concomitant]
  16. WARFARIN [Concomitant]
  17. ZOLPIDEM [Concomitant]
  18. VENLAFAXINE [Concomitant]
  19. HOME OXYGEN THERAPY [Concomitant]

REACTIONS (27)
  - Respiratory arrest [None]
  - Unresponsive to stimuli [None]
  - Pulseless electrical activity [None]
  - Pupil fixed [None]
  - Bundle branch block left [None]
  - Cardiac arrest [None]
  - Body temperature increased [None]
  - Respiratory fume inhalation disorder [None]
  - Blood pH decreased [None]
  - PO2 increased [None]
  - Blood glucose increased [None]
  - Blood potassium decreased [None]
  - Blood creatinine increased [None]
  - Aspartate aminotransferase increased [None]
  - Alanine aminotransferase increased [None]
  - Blood albumin decreased [None]
  - White blood cell count increased [None]
  - Lung consolidation [None]
  - Arteriosclerosis [None]
  - Bronchopneumonia [None]
  - Necrotising bronchiolitis [None]
  - Pulmonary necrosis [None]
  - Bronchitis [None]
  - Tracheal disorder [None]
  - Necrosis [None]
  - Tracheal inflammation [None]
  - Brain hypoxia [None]
